FAERS Safety Report 9380633 (Version 2)
Quarter: 2013Q3

REPORT INFORMATION
  Report Type: Spontaneous
  Country: US (occurrence: None)
  Receive Date: 20130628
  Receipt Date: 20130718
  Transmission Date: 20140515
  Serious: Yes (Other)
  Sender: FDA-Public Use
  Company Number: M-13-028

PATIENT
  Age: 54 Year
  Sex: Female

DRUGS (1)
  1. CLINDAMYCIN HCL [Suspect]
     Indication: DENTAL DISORDER PROPHYLAXIS
     Dosage: AS DIRECTED
     Route: 048
     Dates: start: 20130608, end: 20130612

REACTIONS (3)
  - Abdominal distension [None]
  - Abdominal pain [None]
  - Rash pruritic [None]
